FAERS Safety Report 25502817 (Version 2)
Quarter: 2025Q3

REPORT INFORMATION
  Report Type: Spontaneous
  Country: US (occurrence: US)
  Receive Date: 20250702
  Receipt Date: 20250801
  Transmission Date: 20251020
  Serious: Yes (Death, Other)
  Sender: AUROBINDO
  Company Number: US-AUROBINDO-AUR-APL-2025-031967

PATIENT
  Age: 81 Year
  Sex: Male

DRUGS (5)
  1. FLUCYTOSINE [Suspect]
     Active Substance: FLUCYTOSINE
     Indication: Acanthamoeba infection
     Dosage: 2000 MILLIGRAM, ONCE A DAY
     Route: 065
  2. VORICONAZOLE [Suspect]
     Active Substance: VORICONAZOLE
     Indication: Acanthamoeba infection
     Route: 065
  3. MILTEFOSINE [Suspect]
     Active Substance: MILTEFOSINE
     Indication: Acanthamoeba infection
     Dosage: 50 MILLIGRAM, 3 TIMES A DAY
     Route: 065
  4. SULFADIAZINE [Suspect]
     Active Substance: SULFADIAZINE
     Indication: Acanthamoeba infection
     Dosage: 1500 MILLIGRAM, EVERY FOUR HOUR
     Route: 065
  5. SULFADIAZINE [Suspect]
     Active Substance: SULFADIAZINE
     Dosage: 1500 MILLIGRAM, FOUR TIMES/DAY
     Route: 065

REACTIONS (2)
  - Renal failure [Fatal]
  - Drug ineffective [Unknown]
